FAERS Safety Report 7005249-X (Version None)
Quarter: 2010Q3

REPORT INFORMATION
  Report Type: 
  Country: None (occurrence: None)
  Receive Date: 20100917
  Receipt Date: 20100909
  Transmission Date: 20110219
  Serious: Yes (Life-Threatening)
  Sender: FDA-Public Use
  Company Number: 018433

PATIENT
  Sex: Male

DRUGS (8)
  1. KEPPRA [Suspect]
     Indication: POST-TRAUMATIC EPILEPSY
     Dosage: (250 MG BID ORAL), (500 MG BID ORAL)
     Route: 048
     Dates: start: 20100401, end: 20100101
  2. KEPPRA [Suspect]
     Indication: POST-TRAUMATIC EPILEPSY
     Dosage: (250 MG BID ORAL), (500 MG BID ORAL)
     Route: 048
     Dates: start: 20100101, end: 20100730
  3. SERESTA [Concomitant]
  4. ABILIFY [Concomitant]
  5. EFFERALGAN /00020001/ [Concomitant]
  6. MEPRONIZINE /00789201/ [Concomitant]
  7. STABLON /00956301/ [Concomitant]
  8. PARIET [Concomitant]

REACTIONS (5)
  - AFFECTIVE DISORDER [None]
  - HALLUCINATION [None]
  - PSYCHOMOTOR HYPERACTIVITY [None]
  - SUICIDE ATTEMPT [None]
  - UNEVALUABLE EVENT [None]
